FAERS Safety Report 4443989-7 (Version None)
Quarter: 2004Q3

REPORT INFORMATION
  Report Type: 
  Country: None (occurrence: None)
  Receive Date: 20040729
  Receipt Date: 20020128
  Transmission Date: 20050211
  Serious: Yes (Death)
  Sender: FDA-Public Use
  Company Number: USA-2002-0000016

PATIENT
  Age: 29 Year
  Sex: Male

DRUGS (5)
  1. MORPHINE SULFATE [Suspect]
     Dosage: MG,
  2. METHYLENEDIOXYAMPHETAMINE (METHYLDIOXYAMPHETAMINE) [Suspect]
     Dosage: MG,
  3. DIAZEPAM [Suspect]
     Dosage: MG,
  4. ETHANOL (ETHANOL) [Suspect]
     Dosage: ORAL
     Route: 048
  5. CAFFEINE (CAFFEINE) [Suspect]

REACTIONS (1)
  - ACCIDENTAL OVERDOSE [None]
